FAERS Safety Report 7252375-6 (Version None)
Quarter: 2011Q1

REPORT INFORMATION
  Report Type: 
  Country: None (occurrence: None)
  Receive Date: 20110129
  Receipt Date: 20100112
  Transmission Date: 20110831
  Serious: No
  Sender: FDA-Public Use
  Company Number: US-ABBOTT-10P-163-0619586-00

PATIENT
  Sex: Male
  Weight: 66.738 kg

DRUGS (6)
  1. HUMIRA [Suspect]
     Indication: RHEUMATOID ARTHRITIS
     Dosage: AFTER TWO DOSES STOPPED MEDICATION
     Route: 058
     Dates: end: 20091201
  2. HYDROCODONE [Concomitant]
     Indication: PAIN
  3. PREDNISONE [Concomitant]
     Indication: PRODUCT USED FOR UNKNOWN INDICATION
  4. GALACTIN [Concomitant]
     Indication: BACK PAIN
  5. AMBIEN [Concomitant]
     Indication: INSOMNIA
  6. ASPIRIN [Concomitant]
     Indication: PRODUCT USED FOR UNKNOWN INDICATION

REACTIONS (2)
  - ARTHRALGIA [None]
  - BACK PAIN [None]
